FAERS Safety Report 11836193 (Version 1)
Quarter: 2015Q4

REPORT INFORMATION
  Report Type: Spontaneous
  Country: FR (occurrence: FR)
  Receive Date: 20151215
  Receipt Date: 20151215
  Transmission Date: 20160305
  Serious: Yes (Other)
  Sender: FDA-Public Use
  Company Number: FR-PFIZER INC-2015445822

PATIENT
  Age: 54 Year
  Sex: Female

DRUGS (3)
  1. MAXILASE [Suspect]
     Active Substance: PANCRELIPASE
     Dosage: UNK UNK, DAILY (3000 UNITS)
     Route: 048
     Dates: start: 201506, end: 201506
  2. PANTOPRAZOLE [Suspect]
     Active Substance: PANTOPRAZOLE SODIUM
     Dosage: 1 DF, DAILY
     Route: 048
     Dates: start: 201506, end: 201506
  3. VOLTARENE [Suspect]
     Active Substance: DICLOFENAC SODIUM
     Dosage: 75 MG, 1X/DAY
     Route: 048
     Dates: start: 201506, end: 201506

REACTIONS (3)
  - Lip oedema [Recovered/Resolved]
  - Dyspnoea [Recovered/Resolved]
  - Wheezing [Recovered/Resolved]

NARRATIVE: CASE EVENT DATE: 201506
